FAERS Safety Report 20557368 (Version 2)
Quarter: 2022Q4

REPORT INFORMATION
  Report Type: Spontaneous
  Country: US (occurrence: US)
  Receive Date: 20220307
  Receipt Date: 20221023
  Transmission Date: 20230113
  Serious: Yes (Hospitalization, Disabling, Other)
  Sender: FDA-Public Use
  Company Number: US-ORGANON-O2203USA000191

PATIENT
  Sex: Male

DRUGS (18)
  1. SINGULAIR [Suspect]
     Active Substance: MONTELUKAST SODIUM
     Indication: Asthma late onset
     Dosage: 10 MILLIGRAM, DAILY
     Dates: start: 2001, end: 201001
  2. SINGULAIR [Suspect]
     Active Substance: MONTELUKAST SODIUM
     Dosage: UNK
     Route: 048
     Dates: start: 2010, end: 2012
  3. SINGULAIR [Suspect]
     Active Substance: MONTELUKAST SODIUM
     Dosage: 30 MILLIGRAM
  4. LAMICTAL [Suspect]
     Active Substance: LAMOTRIGINE
     Dosage: 200MG A DAY
  5. AZMACORT [Suspect]
     Active Substance: TRIAMCINOLONE ACETONIDE
     Indication: Asthma late onset
     Dosage: 2 PUFFS 2 TIMES DAY
     Dates: start: 2001
  6. ALBUTEROL SULFATE [Suspect]
     Active Substance: ALBUTEROL SULFATE
     Indication: Dyspnoea
     Dosage: INHALE 2 PUFFS BY MOUTH EVERY SIX HOURS AS NEEDED
     Route: 048
  7. ALBUTEROL SULFATE [Suspect]
     Active Substance: ALBUTEROL SULFATE
     Dosage: 2-4 TIMES A DAY
  8. ASMANEX [Concomitant]
     Active Substance: MOMETASONE FUROATE
     Indication: Asthma late onset
     Dosage: UNK
  9. NASONEX [Concomitant]
     Active Substance: MOMETASONE FUROATE
     Indication: Asthma late onset
     Dosage: TWICE DAILY
  10. ALBUTEROL SULFATE [Concomitant]
     Active Substance: ALBUTEROL SULFATE
     Indication: Asthma late onset
     Dosage: 2 TO 4 TIMES A DAY
  11. FORADIL [Concomitant]
     Active Substance: FORMOTEROL FUMARATE
     Indication: Asthma late onset
     Dosage: UNK
  12. SEREVENT DISKUS [Concomitant]
     Active Substance: SALMETEROL XINAFOATE
     Indication: Asthma late onset
     Dosage: TWICE DAILY
  13. SYMBICORT [Concomitant]
     Active Substance: BUDESONIDE\FORMOTEROL FUMARATE DIHYDRATE
     Indication: Asthma late onset
     Dosage: UNK
  14. ATENOLOL [Concomitant]
     Active Substance: ATENOLOL
     Indication: Anxiety
     Dosage: TAKE ONE TABLET BY MOUTH EVERY MORNING AND TAKE ONE-HALF TABLET EVERY EVENING
     Route: 048
  15. ATENOLOL [Concomitant]
     Active Substance: ATENOLOL
     Indication: Blood pressure abnormal
  16. CHOLECALCIFEROL [Concomitant]
     Active Substance: CHOLECALCIFEROL
     Indication: Supplementation therapy
     Dosage: 2,000UNIT TAB TAKE ONE ACTIVE TABLET BY MOUTH DAILY
     Route: 048
  17. ESCITALOPRAM [Concomitant]
     Active Substance: ESCITALOPRAM OXALATE
     Indication: Mood altered
     Dosage: TAKE ONE TABLET BY MOUTH DAILY
     Route: 048
  18. LAMOTRIGINE [Concomitant]
     Active Substance: LAMOTRIGINE
     Dosage: TAKE ONE TABLET BY MOUTH AT BEDTIME
     Route: 048

REACTIONS (23)
  - Major depression [Not Recovered/Not Resolved]
  - Neuropsychiatric symptoms [Not Recovered/Not Resolved]
  - Craniocerebral injury [Unknown]
  - Hallucination, auditory [Unknown]
  - Bipolar II disorder [Recovering/Resolving]
  - Sternal fracture [Unknown]
  - Syncope [Unknown]
  - Skull fracture [Unknown]
  - Pneumonia [Unknown]
  - Hyperlipidaemia [Unknown]
  - Road traffic accident [Unknown]
  - Hyperglycaemia [Not Recovered/Not Resolved]
  - Hypersensitivity [Unknown]
  - Alcohol use disorder [Recovering/Resolving]
  - Anosmia [Unknown]
  - Nerve injury [Unknown]
  - Sleep apnoea syndrome [Not Recovered/Not Resolved]
  - Dizziness [Recovered/Resolved]
  - Attention deficit hyperactivity disorder [Unknown]
  - Skin lesion [Not Recovered/Not Resolved]
  - Skin injury [Not Recovered/Not Resolved]
  - Hypertension [Not Recovered/Not Resolved]
  - Arthralgia [Unknown]

NARRATIVE: CASE EVENT DATE: 20100101
